FAERS Safety Report 17020337 (Version 1)
Quarter: 2019Q4

REPORT INFORMATION
  Report Type: Spontaneous
  Country: FR (occurrence: US)
  Receive Date: 20191112
  Receipt Date: 20191112
  Transmission Date: 20200122
  Serious: No
  Sender: FDA-Public Use
  Company Number: FR-BTG-201900144

PATIENT
  Sex: Male

DRUGS (1)
  1. CROFAB [Suspect]
     Active Substance: CROTALIDAE POLYVALENT IMMUNE FAB (OVINE)
     Indication: SNAKE BITE
     Dosage: HE REPORTS THAT HE RECEIVED 2 REGIMENS. 4 VIALS AND THEN 24 HOURS LATER 4 MORE VIALS
     Route: 065
     Dates: start: 20190728, end: 20190730

REACTIONS (3)
  - Vomiting [Unknown]
  - Inappropriate schedule of product administration [Unknown]
  - Laboratory test abnormal [Unknown]
